FAERS Safety Report 7268753-5 (Version None)
Quarter: 2011Q1

REPORT INFORMATION
  Report Type: 
  Country: None (occurrence: None)
  Receive Date: 20110201
  Receipt Date: 20110127
  Transmission Date: 20110831
  Serious: Yes (Death)
  Sender: FDA-Public Use
  Company Number: US-CELGENEUS-163-21880-10111382

PATIENT
  Sex: Female

DRUGS (2)
  1. REVLIMID [Suspect]
     Route: 048
     Dates: start: 20100208, end: 20100101
  2. REVLIMID [Suspect]
     Route: 048
     Dates: start: 20100601

REACTIONS (1)
  - MULTIPLE MYELOMA [None]
